FAERS Safety Report 5569037-3 (Version None)
Quarter: 2007Q4

REPORT INFORMATION
  Report Type: 
  Country: None (occurrence: None)
  Receive Date: 20071218
  Receipt Date: 20071203
  Transmission Date: 20080405
  Serious: Yes (Disabling)
  Sender: FDA-Public Use
  Company Number: MK-6028022

PATIENT
  Age: 63 Year
  Sex: Male

DRUGS (10)
  1. RAMIPRIL [Suspect]
     Dosage: 10 MG;DAILY
     Dates: start: 20010510
  2. ISOSORBIDE MONONITRATE [Concomitant]
  3. ASPIRIN [Concomitant]
  4. ATORVASTATIN CALCIUM [Concomitant]
  5. MYOCRISIN (SODIUM AUROTHIOMALATE), 50 MG; INTRAMUSCULAR;/MONTH [Suspect]
     Indication: RHEUMATOID ARTHRITIS
     Dosage: 50 MG;/MONTH
     Route: 030
     Dates: start: 19840101
  6. ATENOLOL [Suspect]
     Indication: DRUG USE FOR UNKNOWN INDICATION
     Dosage: 50 MG
  7. NICORANDIL (NICORANDIL) [Concomitant]
  8. AMLODIPINE [Concomitant]
  9. CLOPIDOGREL [Concomitant]
  10. PREDNISONE [Concomitant]

REACTIONS (7)
  - ANGINA PECTORIS [None]
  - DRUG INTERACTION [None]
  - HYPOTENSION [None]
  - MALAISE [None]
  - NAUSEA [None]
  - NITRITOID REACTION [None]
  - SYNCOPE VASOVAGAL [None]
